FAERS Safety Report 8264489-2 (Version None)
Quarter: 2012Q2

REPORT INFORMATION
  Report Type: 
  Country: None (occurrence: None)
  Receive Date: 20120406
  Receipt Date: 20120327
  Transmission Date: 20120825
  Serious: Yes (Hospitalization)
  Sender: FDA-Public Use
  Company Number: CA-JNJFOC-20120313468

PATIENT
  Sex: Male
  Weight: 79 kg

DRUGS (1)
  1. REMICADE [Suspect]
     Indication: CROHN'S DISEASE
     Dosage: 4X52 WEEKS
     Route: 042
     Dates: start: 20110922

REACTIONS (1)
  - CROHN'S DISEASE [None]
